FAERS Safety Report 20229710 (Version 1)
Quarter: 2021Q4

REPORT INFORMATION
  Report Type: Spontaneous
  Country: US (occurrence: US)
  Receive Date: 20211226
  Receipt Date: 20211226
  Transmission Date: 20220303
  Serious: No
  Sender: FDA-Public Use
  Company Number: US-SA-SAC20211221000526

PATIENT
  Age: 31 Year
  Sex: Female

DRUGS (1)
  1. DUPIXENT [Suspect]
     Active Substance: DUPILUMAB
     Indication: Dermatitis atopic
     Dosage: UNK UNK, QOW
     Route: 058

REACTIONS (9)
  - Anxiety [Unknown]
  - Burning sensation [Unknown]
  - Pruritus [Unknown]
  - Blister [Unknown]
  - Cardiac disorder [Unknown]
  - Skin exfoliation [Unknown]
  - Rash [Unknown]
  - Hypersensitivity [Unknown]
  - Dermatitis atopic [Unknown]
